FAERS Safety Report 9430150 (Version 2)
Quarter: 2013Q3

REPORT INFORMATION
  Report Type: Spontaneous
  Country: IT (occurrence: IT)
  Receive Date: 20130730
  Receipt Date: 20130926
  Transmission Date: 20140515
  Serious: Yes (Hospitalization)
  Sender: FDA-Public Use
  Company Number: IT-TEVA-421710ISR

PATIENT
  Age: 50 Year
  Sex: Female

DRUGS (7)
  1. METFORMIN [Suspect]
     Indication: SELF INJURIOUS BEHAVIOUR
     Dosage: 1000 MILLIGRAM DAILY;
     Route: 048
     Dates: start: 20130615, end: 20130615
  2. DEPAKIN CHRONO 300MG [Suspect]
     Indication: SELF INJURIOUS BEHAVIOUR
     Dosage: 6000 MILLIGRAM DAILY;
     Route: 048
     Dates: start: 20130615, end: 20130615
  3. MOMENT 200MG [Suspect]
     Indication: SELF INJURIOUS BEHAVIOUR
     Dosage: 2400 MILLIGRAM DAILY;
     Route: 048
     Dates: start: 20130615, end: 20130615
  4. MOMENTACT 400MG [Suspect]
     Indication: SELF INJURIOUS BEHAVIOUR
     Dosage: 4800 MILLIGRAM DAILY;
     Route: 048
     Dates: start: 20130615, end: 20130615
  5. ENANTYUM 25MG [Suspect]
     Indication: SELF INJURIOUS BEHAVIOUR
     Dosage: 1000 MILLIGRAM DAILY;
     Route: 048
     Dates: start: 20130615, end: 20130615
  6. ZERINOL 300MG+2MG [Suspect]
     Dosage: 6000 MILLIGRAM DAILY;
     Route: 048
     Dates: start: 20130615, end: 20130615
  7. TACHIPIRINA 500MG [Suspect]
     Indication: SELF INJURIOUS BEHAVIOUR
     Dosage: 5000 MILLIGRAM DAILY;
     Route: 048
     Dates: start: 20130615, end: 20130615

REACTIONS (5)
  - Suicide attempt [Unknown]
  - Sopor [Unknown]
  - Drug abuse [Unknown]
  - Headache [Unknown]
  - Speech disorder [Unknown]
